FAERS Safety Report 11339654 (Version 1)
Quarter: 2015Q3

REPORT INFORMATION
  Report Type: Spontaneous
  Country: GB (occurrence: GB)
  Receive Date: 20150805
  Receipt Date: 20150805
  Transmission Date: 20151125
  Serious: Yes (Other)
  Sender: FDA-Public Use
  Company Number: GB-ACCORD-032626

PATIENT
  Age: 71 Year
  Sex: Male

DRUGS (12)
  1. METFORMIN [Concomitant]
     Active Substance: METFORMIN HYDROCHLORIDE
  2. RAMIPRIL. [Concomitant]
     Active Substance: RAMIPRIL
  3. GABAPENTIN. [Concomitant]
     Active Substance: GABAPENTIN
  4. SILDENAFIL. [Concomitant]
     Active Substance: SILDENAFIL
  5. MACROGOL/MACROGOL STEARATE [Concomitant]
  6. PARACETAMOL [Concomitant]
     Active Substance: ACETAMINOPHEN
  7. WARFARIN [Interacting]
     Active Substance: WARFARIN
     Indication: ATRIAL FIBRILLATION
     Route: 048
     Dates: start: 2013
  8. BUPRENORPHINE. [Concomitant]
     Active Substance: BUPRENORPHINE
  9. IRON [Concomitant]
     Active Substance: IRON
  10. FINASTERIDE. [Suspect]
     Active Substance: FINASTERIDE
     Indication: BENIGN PROSTATIC HYPERPLASIA
     Route: 048
     Dates: start: 201505
  11. PRIMIDONE. [Concomitant]
     Active Substance: PRIMIDONE
  12. ZOLPIDEM [Concomitant]
     Active Substance: ZOLPIDEM\ZOLPIDEM TARTRATE

REACTIONS (2)
  - International normalised ratio decreased [Recovering/Resolving]
  - Drug interaction [Unknown]

NARRATIVE: CASE EVENT DATE: 201505
